FAERS Safety Report 24353403 (Version 1)
Quarter: 2024Q3

REPORT INFORMATION
  Report Type: Spontaneous
  Country: US (occurrence: US)
  Receive Date: 20240923
  Receipt Date: 20240923
  Transmission Date: 20241016
  Serious: No
  Sender: ELI LILLY AND CO
  Company Number: US-ELI_LILLY_AND_COMPANY-US202409012897

PATIENT
  Age: 54 Year
  Sex: Female

DRUGS (2)
  1. TALTZ [Suspect]
     Active Substance: IXEKIZUMAB
     Indication: Systemic lupus erythematosus
     Dosage: 80 MG, UNKNOWN
     Route: 058
     Dates: start: 202403
  2. TALTZ [Suspect]
     Active Substance: IXEKIZUMAB
     Indication: Arthropathy

REACTIONS (1)
  - Injection site pain [Recovered/Resolved]
